FAERS Safety Report 14974403 (Version 1)
Quarter: 2018Q2

REPORT INFORMATION
  Report Type: Spontaneous
  Country: US (occurrence: US)
  Receive Date: 20180514
  Receipt Date: 20180514
  Transmission Date: 20180711
  Serious: No
  Sender: FDA-Public Use
  Company Number: None

PATIENT
  Age: 66 Year
  Sex: Female

DRUGS (3)
  1. TEMOZOLOMIDE. [Suspect]
     Active Substance: TEMOZOLOMIDE
     Indication: MENTAL DISORDER
     Route: 048
     Dates: start: 20180412
  2. TEMOZOLOMIDE. [Suspect]
     Active Substance: TEMOZOLOMIDE
  3. TEMOZOLOMIDE. [Suspect]
     Active Substance: TEMOZOLOMIDE
     Indication: MENTAL DISORDER
     Route: 048
     Dates: start: 20180412

REACTIONS (2)
  - Urine output increased [None]
  - Chromaturia [None]

NARRATIVE: CASE EVENT DATE: 20180501
